FAERS Safety Report 15765373 (Version 2)
Quarter: 2019Q1

REPORT INFORMATION
  Report Type: Spontaneous
  Country: BR (occurrence: BR)
  Receive Date: 20181227
  Receipt Date: 20190109
  Transmission Date: 20190417
  Serious: Yes (Life-Threatening, Other)
  Sender: FDA-Public Use
  Company Number: BR-SA-2018SA393514

PATIENT
  Age: 57 Year
  Sex: Female
  Weight: 59 kg

DRUGS (3)
  1. STILNOX [Suspect]
     Active Substance: ZOLPIDEM TARTRATE
     Indication: SLEEP DISORDER
     Dosage: 1 DF, QD
     Route: 048
     Dates: start: 20181106, end: 20181117
  2. GINKGO BILOBA EXTRACT [GINKGO BILOBA LEAF] [Concomitant]
     Indication: LABYRINTHITIS
     Dosage: 1 IN MORNING + 1 IN THE NIGHT
     Route: 048
     Dates: start: 20181210
  3. DIGEPLUS [DIMETICONE;METOCLOPRAMIDE HYDROCHLORIDE;PEPSIN] [Concomitant]
     Indication: GASTRITIS
     Dosage: 3 A DAY/ BEFORE THE MEALS
     Route: 048
     Dates: start: 20181204, end: 20181217

REACTIONS (7)
  - Wheezing [Recovered/Resolved]
  - Anaphylactic shock [Recovered/Resolved]
  - Exophthalmos [Recovered/Resolved]
  - Pallor [Recovered/Resolved]
  - Hypertension [Recovered/Resolved]
  - Amnesia [Recovered/Resolved]
  - Slow response to stimuli [Recovered/Resolved]

NARRATIVE: CASE EVENT DATE: 20181217
